FAERS Safety Report 24676768 (Version 2)
Quarter: 2024Q4

REPORT INFORMATION
  Report Type: Report from Study
  Country: US (occurrence: US)
  Receive Date: 20241128
  Receipt Date: 20241216
  Transmission Date: 20250115
  Serious: Yes (Hospitalization)
  Sender: ABBVIE
  Company Number: US-ABBVIE-6023253

PATIENT
  Age: 57 Year
  Sex: Female

DRUGS (4)
  1. SKYRIZI [Suspect]
     Active Substance: RISANKIZUMAB-RZAA
     Indication: Crohn^s disease
     Dosage: WEEK 0
     Route: 058
     Dates: start: 20240905, end: 20240905
  2. SKYRIZI [Suspect]
     Active Substance: RISANKIZUMAB-RZAA
     Indication: Crohn^s disease
     Dosage: WEEK 4
     Route: 058
     Dates: start: 20241003, end: 20241003
  3. SKYRIZI [Suspect]
     Active Substance: RISANKIZUMAB-RZAA
     Indication: Crohn^s disease
     Dosage: WEEK 8. THEN 360 MG UNDER THE SKIN AT WEEK 12 (DUE 28 NOV 2024) AND THEN EVERY 8 WEEKS THEREAFTER.
     Route: 058
     Dates: start: 20241031
  4. ZEPOSIA [Concomitant]
     Active Substance: OZANIMOD HYDROCHLORIDE
     Indication: Product used for unknown indication

REACTIONS (7)
  - Clostridium difficile infection [Unknown]
  - Abdominal pain [Unknown]
  - Asthenia [Unknown]
  - Arthralgia [Unknown]
  - Frequent bowel movements [Unknown]
  - Decreased appetite [Unknown]
  - Flatulence [Unknown]

NARRATIVE: CASE EVENT DATE: 20240101
